FAERS Safety Report 7962016-8 (Version None)
Quarter: 2011Q4

REPORT INFORMATION
  Report Type: 
  Country: None (occurrence: None)
  Receive Date: 20111207
  Receipt Date: 20111129
  Transmission Date: 20120403
  Serious: Yes (Other)
  Sender: FDA-Public Use
  Company Number: GB-TEVA-311185ISR

PATIENT
  Age: 72 Year
  Sex: Male

DRUGS (2)
  1. CHLORPROMAZINE [Suspect]
     Dosage: ONCE AT NIGHT
  2. OLANZAPINE [Suspect]

REACTIONS (4)
  - PYREXIA [None]
  - LEUKOPENIA [None]
  - PANCYTOPENIA [None]
  - CELLULITIS [None]
